FAERS Safety Report 7288122 (Version 2)
Quarter: 2013Q1

REPORT INFORMATION
  Report Type: Spontaneous
  Country: US (occurrence: US)
  Receive Date: 20100222
  Receipt Date: 20130219
  Transmission Date: 20140127
  Serious: No
  Sender: FDA-Public Use
  Company Number: US-BRISTOL-MYERS SQUIBB COMPANY-14620702

PATIENT
  Age: 63 Year
  Sex: Female
  Weight: 91 kg

DRUGS (1)
  1. ORENCIA [Suspect]
     Indication: RHEUMATOID ARTHRITIS
     Dosage: LAST INF; 18SEP12, CHANGED FROM 4WKS TO 3WEEKS ONCE
     Route: 042

REACTIONS (2)
  - Drug ineffective [Unknown]
  - Weight increased [Unknown]
